FAERS Safety Report 23742572 (Version 2)
Quarter: 2024Q2

REPORT INFORMATION
  Report Type: Spontaneous
  Country: US (occurrence: US)
  Receive Date: 20240415
  Receipt Date: 20240529
  Transmission Date: 20240715
  Serious: No
  Sender: FDA-Public Use
  Company Number: US-BAYER-2024A051925

PATIENT
  Sex: Female

DRUGS (1)
  1. ESTRADIOL [Suspect]
     Active Substance: ESTRADIOL
     Dosage: UNK
     Route: 062
     Dates: start: 202402

REACTIONS (4)
  - Application site rash [None]
  - Device adhesion issue [None]
  - Wrong technique in product usage process [None]
  - Device use issue [None]

NARRATIVE: CASE EVENT DATE: 20240201
